FAERS Safety Report 14680106 (Version 1)
Quarter: 2018Q1

REPORT INFORMATION
  Report Type: Spontaneous
  Country: US (occurrence: US)
  Receive Date: 20180324
  Receipt Date: 20180324
  Transmission Date: 20180509
  Serious: No
  Sender: FDA-Public Use
  Company Number: None

PATIENT
  Sex: Female

DRUGS (1)
  1. OTEZLA [Suspect]
     Active Substance: APREMILAST
     Indication: PSORIASIS
     Route: 048
     Dates: start: 20180312

REACTIONS (8)
  - Decreased appetite [None]
  - Diarrhoea [None]
  - Loss of personal independence in daily activities [None]
  - Dizziness [None]
  - Tension headache [None]
  - Nausea [None]
  - Muscle spasms [None]
  - Frequent bowel movements [None]
